FAERS Safety Report 10064249 (Version 2)
Quarter: 2013Q4

REPORT INFORMATION
  Report Type: Spontaneous
  Country: US (occurrence: None)
  Receive Date: 20131118
  Receipt Date: 20131126
  Transmission Date: 20140711
  Serious: Yes (Hospitalization)
  Sender: FDA-Public Use
  Company Number: 43912

PATIENT
  Age: 61 Year
  Sex: Female
  Weight: 40.82 kg

DRUGS (9)
  1. GLASSIA [Suspect]
     Indication: ALPHA-1 ANTI-TRYPSIN DECREASED
     Dosage: 2482, WEEKLY, IV
     Route: 042
     Dates: start: 20130408, end: 20131002
  2. ADVAIR [Concomitant]
  3. ALBUTEROL [Concomitant]
  4. NASONEX [Concomitant]
  5. SPIRIVA [Concomitant]
  6. GABAPENTIN [Concomitant]
  7. SERTRALINE [Concomitant]
  8. THEOPHYLLINE [Concomitant]
  9. OXYGEN [Concomitant]

REACTIONS (4)
  - Pneumonia [None]
  - Chronic obstructive pulmonary disease [None]
  - No therapeutic response [None]
  - Respiratory failure [None]
